FAERS Safety Report 10900450 (Version 1)
Quarter: 2015Q1

REPORT INFORMATION
  Report Type: Spontaneous
  Country: IN (occurrence: IN)
  Receive Date: 20150310
  Receipt Date: 20150310
  Transmission Date: 20150721
  Serious: Yes (Hospitalization, Other)
  Sender: FDA-Public Use
  Company Number: IN-AUROBINDO-AUR-APL-2015-01951

PATIENT
  Age: 30 Year
  Sex: Male

DRUGS (3)
  1. DIVALPROEX [Suspect]
     Active Substance: DIVALPROEX SODIUM
     Indication: SEIZURE
     Dosage: 1000 MG, UNK
     Route: 065
  2. PHENYTOIN. [Concomitant]
     Active Substance: PHENYTOIN
     Indication: SEIZURE
     Dosage: UNK
     Route: 065
  3. CLOBAZAM [Concomitant]
     Active Substance: CLOBAZAM
     Indication: SEIZURE
     Dosage: UNK
     Route: 065

REACTIONS (12)
  - Dystonia [Unknown]
  - Mental impairment [Unknown]
  - Abnormal behaviour [Unknown]
  - Lethargy [Unknown]
  - Hyperammonaemia [Unknown]
  - Disturbance in attention [Unknown]
  - Irritability [Unknown]
  - Memory impairment [Unknown]
  - Cognitive disorder [Unknown]
  - Anxiety [Unknown]
  - Blood folate decreased [Unknown]
  - Yawning [Unknown]
